FAERS Safety Report 4548436-2 (Version None)
Quarter: 2005Q1

REPORT INFORMATION
  Report Type: 
  Country: None (occurrence: None)
  Receive Date: 20050106
  Receipt Date: 20041220
  Transmission Date: 20050727
  Serious: Yes (Death, Hospitalization)
  Sender: FDA-Public Use
  Company Number: USA041286618

PATIENT
  Sex: Female

DRUGS (1)
  1. GEMZAR [Suspect]
     Indication: ENDOMETRIAL CANCER RECURRENT

REACTIONS (7)
  - ABASIA [None]
  - ASTHENIA [None]
  - ENDOMETRIAL CANCER RECURRENT [None]
  - GENERAL PHYSICAL HEALTH DETERIORATION [None]
  - MALIGNANT NEOPLASM PROGRESSION [None]
  - METASTASES TO SPINE [None]
  - MOTOR DYSFUNCTION [None]
